FAERS Safety Report 13837587 (Version 1)
Quarter: 2017Q3

REPORT INFORMATION
  Report Type: Spontaneous
  Country: IN (occurrence: IN)
  Receive Date: 20170805
  Receipt Date: 20170805
  Transmission Date: 20171127
  Serious: Yes (Hospitalization, Other)
  Sender: FDA-Public Use
  Company Number: IN-ACCORD-056731

PATIENT
  Age: 46 Year
  Sex: Male

DRUGS (1)
  1. TRAMADOL/TRAMADOL HYDROCHLORIDE [Suspect]
     Active Substance: TRAMADOL HYDROCHLORIDE
     Dosage: INITIALLY USED TO TAKE 8-10 TABLETS
     Route: 048

REACTIONS (2)
  - Intestinal obstruction [Unknown]
  - Drug dependence [Unknown]
